FAERS Safety Report 19775381 (Version 3)
Quarter: 2021Q4

REPORT INFORMATION
  Report Type: Report from Study
  Country: US (occurrence: US)
  Receive Date: 20210901
  Receipt Date: 20211104
  Transmission Date: 20220303
  Serious: Yes (Other)
  Sender: FDA-Public Use
  Company Number: US-JAZZ-2021-US-015697

PATIENT
  Age: 22 Year
  Sex: Female

DRUGS (3)
  1. XYREM [Suspect]
     Active Substance: SODIUM OXYBATE
     Indication: Narcolepsy
     Dosage: 2.25 GRAM, BID
     Route: 048
     Dates: start: 201912, end: 201912
  2. XYREM [Suspect]
     Active Substance: SODIUM OXYBATE
     Dosage: DOSE ADJUSTMENT
     Route: 048
     Dates: start: 201912, end: 201912
  3. XYREM [Suspect]
     Active Substance: SODIUM OXYBATE
     Dosage: 4.5 GRAM, BID
     Route: 048
     Dates: start: 201912

REACTIONS (4)
  - Ehlers-Danlos syndrome [Recovering/Resolving]
  - Condition aggravated [Recovering/Resolving]
  - Mast cell activation syndrome [Not Recovered/Not Resolved]
  - Ankle arthroplasty [Unknown]

NARRATIVE: CASE EVENT DATE: 20210601
